FAERS Safety Report 22146817 (Version 1)
Quarter: 2023Q1

REPORT INFORMATION
  Report Type: Spontaneous
  Country: US (occurrence: None)
  Receive Date: 20230327
  Receipt Date: 20230327
  Transmission Date: 20230418
  Serious: No
  Sender: FDA-Public Use
  Company Number: None

PATIENT
  Age: 67 Year
  Sex: Female

DRUGS (1)
  1. HUMIRA [Suspect]
     Active Substance: ADALIMUMAB
     Dosage: 40MG OTHER SUBCUTANEOUS
     Route: 058
     Dates: start: 200303

REACTIONS (4)
  - Dizziness [None]
  - Vertigo [None]
  - COVID-19 [None]
  - Diarrhoea [None]

NARRATIVE: CASE EVENT DATE: 20230120
